FAERS Safety Report 23150623 (Version 1)
Quarter: 2023Q4

REPORT INFORMATION
  Report Type: Spontaneous
  Country: IN (occurrence: IN)
  Receive Date: 20231106
  Receipt Date: 20231106
  Transmission Date: 20240110
  Serious: Yes (Hospitalization)
  Sender: FDA-Public Use
  Company Number: IN-PFIZER INC-PV202300065518

PATIENT
  Age: 30 Year
  Sex: Male

DRUGS (2)
  1. LORLATINIB [Suspect]
     Active Substance: LORLATINIB
     Indication: Lung carcinoma cell type unspecified stage IV
     Dosage: 100 MG, 1X/DAY
     Route: 048
     Dates: start: 2021, end: 2022
  2. LORLATINIB [Suspect]
     Active Substance: LORLATINIB
     Dosage: UNK
     Dates: start: 202304

REACTIONS (5)
  - Abdominal pain [Unknown]
  - Bone pain [Unknown]
  - Fatigue [Unknown]
  - Back pain [Unknown]
  - Neoplasm progression [Unknown]
